FAERS Safety Report 6015437-7 (Version None)
Quarter: 2008Q4

REPORT INFORMATION
  Report Type: 
  Country: None (occurrence: None)
  Receive Date: 20081222
  Receipt Date: 20081210
  Transmission Date: 20090506
  Serious: Yes (Other)
  Sender: FDA-Public Use
  Company Number: PHHY2008MX31502

PATIENT
  Sex: Female

DRUGS (2)
  1. ZELMAC [Suspect]
     Indication: IRRITABLE BOWEL SYNDROME
     Dosage: 2 TAB/DAY
     Route: 048
     Dates: start: 20080922, end: 20081120
  2. RABEPRAZOLE SODIUM [Concomitant]
     Indication: ABDOMINAL DISCOMFORT
     Dosage: 2 TAB/DAY
     Dates: start: 20080922

REACTIONS (4)
  - DIARRHOEA [None]
  - INFECTION [None]
  - KIDNEY INFECTION [None]
  - VOMITING [None]
